FAERS Safety Report 10724090 (Version 1)
Quarter: 2015Q1

REPORT INFORMATION
  Report Type: Report from Study
  Country: DE (occurrence: DE)
  Receive Date: 20150120
  Receipt Date: 20150120
  Transmission Date: 20150721
  Serious: Yes (Other)
  Sender: FDA-Public Use
  Company Number: DE-IPSEN BIOPHARMACEUTICALS, INC.-2012-7492

PATIENT
  Age: 16 Year
  Sex: Male
  Weight: 45.5 kg

DRUGS (2)
  1. INCRELEX [Suspect]
     Active Substance: MECASERMIN
     Indication: PRIMARY INSULIN LIKE GROWTH FACTOR-1 DEFICIENCY
     Route: 058
     Dates: start: 20100929, end: 20131114
  2. INCRELEX [Suspect]
     Active Substance: MECASERMIN
     Route: 058
     Dates: start: 20090901, end: 20100928

REACTIONS (1)
  - Osteochondrosis [Recovered/Resolved]

NARRATIVE: CASE EVENT DATE: 20120829
